FAERS Safety Report 20111938 (Version 1)
Quarter: 2021Q4

REPORT INFORMATION
  Report Type: Spontaneous
  Country: US (occurrence: US)
  Receive Date: 20211125
  Receipt Date: 20211125
  Transmission Date: 20220303
  Serious: No
  Sender: FDA-Public Use
  Company Number: US-ORGANON-O2111USA002148

PATIENT
  Age: 20 Year
  Sex: Female
  Weight: 82.54 kg

DRUGS (1)
  1. NEXPLANON [Suspect]
     Active Substance: ETONOGESTREL
     Indication: Contraception
     Dosage: 1IMPLANT OF 68 MILLIGRAM IN LEFT ARM, EVERY 3 YEARS
     Route: 059
     Dates: start: 20210318

REACTIONS (4)
  - Nausea [Not Recovered/Not Resolved]
  - Pruritus [Not Recovered/Not Resolved]
  - Device breakage [Unknown]
  - Device kink [Unknown]

NARRATIVE: CASE EVENT DATE: 20210901
